FAERS Safety Report 6700334-1 (Version None)
Quarter: 2010Q2

REPORT INFORMATION
  Report Type: 
  Country: None (occurrence: None)
  Receive Date: 20100428
  Receipt Date: 20100416
  Transmission Date: 20101027
  Serious: Yes (Death, Hospitalization, Disabling)
  Sender: FDA-Public Use
  Company Number: PH-ROCHE-670899

PATIENT
  Sex: Female
  Weight: 69 kg

DRUGS (12)
  1. MYCOPHENOLATE MOFETIL [Suspect]
     Indication: LUPUS NEPHRITIS
     Dosage: LAST DOSE PRIOR TO SAE: 20 NOV 2009 UNITS 2 TABS, THERAPY TEMPORARILY INTERUPTED.
     Route: 065
     Dates: start: 20090828, end: 20091121
  2. OCRELIZUMAB [Suspect]
     Indication: LUPUS NEPHRITIS
     Dosage: FREQUENCY AS PER THE PROTOCOL. LAST DOSE PRIOR TO SAE ON 14 SEP 2009.
     Route: 042
     Dates: start: 20090828
  3. METHYLPREDNISOLONE [Suspect]
     Indication: LUPUS NEPHRITIS
     Dosage: LAST DOSE PRIOR TO SAE ON 07 DECEMBER 2009, THERAPY TEMPORARILY INTRRUPTED.
     Route: 048
     Dates: start: 20091130, end: 20091207
  4. PREDNISONE [Suspect]
     Indication: DRUG USE FOR UNKNOWN INDICATION
     Dosage: LAST DOSE PRIOR TO SAE: 20 NOV 2009, ROUTE: PER OREM
     Route: 065
  5. LOSARTAN POTASSIUM [Concomitant]
     Dates: start: 20090123, end: 20091207
  6. DILTIAZEM HCL [Concomitant]
     Dates: start: 20090525
  7. DILTIAZEM HCL [Concomitant]
     Dates: end: 20091207
  8. CALTRATE PLUS [Concomitant]
     Dates: start: 20090527
  9. HYDROXYCHLOROQUINE SULFATE [Concomitant]
  10. SIMVASTATIN [Concomitant]
     Dates: end: 20091112
  11. METFORMIN [Concomitant]
     Dates: start: 20090527, end: 20091122
  12. CLONIDINE HCL [Concomitant]
     Dates: start: 20091204, end: 20091207

REACTIONS (4)
  - ACUTE RESPIRATORY DISTRESS SYNDROME [None]
  - CEREBRAL INFARCTION [None]
  - DISSEMINATED INTRAVASCULAR COAGULATION [None]
  - PNEUMONIA [None]
